FAERS Safety Report 5880221-1 (Version None)
Quarter: 2008Q3

REPORT INFORMATION
  Report Type: 
  Country: None (occurrence: None)
  Receive Date: 20080912
  Receipt Date: 20080903
  Transmission Date: 20090109
  Serious: Yes (Hospitalization)
  Sender: FDA-Public Use
  Company Number: GB-ABBOTT-08P-167-0466025-00

PATIENT
  Sex: Female

DRUGS (5)
  1. HUMIRA [Suspect]
     Indication: CROHN'S DISEASE
     Route: 058
     Dates: start: 20080807, end: 20080807
  2. HUMIRA [Suspect]
     Route: 058
     Dates: start: 20080814, end: 20080819
  3. MESALAMINE [Concomitant]
     Indication: CROHN'S DISEASE
     Route: 048
  4. MERCAPTOPURINE [Concomitant]
     Indication: CROHN'S DISEASE
     Route: 048
     Dates: start: 20080818
  5. CALCHIEW D3 [Concomitant]
     Indication: CROHN'S DISEASE
     Route: 048

REACTIONS (6)
  - ARTHRALGIA [None]
  - CROHN'S DISEASE [None]
  - ERYTHEMA [None]
  - LETHARGY [None]
  - MALAISE [None]
  - OEDEMA PERIPHERAL [None]
